FAERS Safety Report 11370797 (Version 1)
Quarter: 2015Q3

REPORT INFORMATION
  Report Type: Spontaneous
  Country: GB (occurrence: GB)
  Receive Date: 20150812
  Receipt Date: 20150812
  Transmission Date: 20151125
  Serious: Yes (Hospitalization, Other)
  Sender: FDA-Public Use
  Company Number: GB-GLAXOSMITHKLINE-GB2015114650

PATIENT
  Age: 48 Year
  Sex: Female
  Weight: 62.59 kg

DRUGS (6)
  1. ZOLPIDEM [Concomitant]
     Active Substance: ZOLPIDEM\ZOLPIDEM TARTRATE
  2. ONDANSETRON [Suspect]
     Active Substance: ONDANSETRON
     Indication: PROPHYLAXIS OF NAUSEA AND VOMITING
     Dosage: ADMINISTERED AS A ONE OFF PROPHYLACTIC DOSE DURING AN ANAESTHETIC SO I DO NOT TAKE IT REGULARLY.
     Route: 051
  3. VESICARE [Concomitant]
     Active Substance: SOLIFENACIN SUCCINATE
  4. ANAESTHETIC [Concomitant]
     Active Substance: UNSPECIFIED INGREDIENT
  5. FOLIC ACID. [Concomitant]
     Active Substance: FOLIC ACID
  6. FEMOSTON [Concomitant]
     Active Substance: DYDROGESTERONE\ESTRADIOL

REACTIONS (10)
  - Torticollis [Recovered/Resolved]
  - Fatigue [Not Recovered/Not Resolved]
  - Seizure [Recovered/Resolved]
  - Abnormal loss of weight [Not Recovered/Not Resolved]
  - Dystonia [Recovered/Resolved with Sequelae]
  - Muscle rigidity [Recovered/Resolved]
  - Malaise [Not Recovered/Not Resolved]
  - Asthenia [Not Recovered/Not Resolved]
  - Dyskinesia [Recovered/Resolved]
  - Body temperature increased [Recovered/Resolved]

NARRATIVE: CASE EVENT DATE: 20140707
